FAERS Safety Report 10178697 (Version 1)
Quarter: 2014Q2

REPORT INFORMATION
  Report Type: Spontaneous
  Country: US (occurrence: US)
  Receive Date: 20140519
  Receipt Date: 20140519
  Transmission Date: 20141212
  Serious: No
  Sender: FDA-Public Use
  Company Number: US-ENDO PHARMACEUTICALS INC.-GILA20140001

PATIENT
  Age: 35 Year
  Sex: Female

DRUGS (2)
  1. GILDAGIA TABLETS [Suspect]
     Indication: PRODUCT USED FOR UNKNOWN INDICATION
     Dosage: 0.4/0.035MG
     Route: 048
     Dates: start: 201311
  2. BALZIVA [Concomitant]
     Indication: PRODUCT USED FOR UNKNOWN INDICATION
     Dosage: UNKNOWN
     Route: 048
     Dates: end: 201311

REACTIONS (1)
  - Rash [Not Recovered/Not Resolved]
